FAERS Safety Report 15457741 (Version 2)
Quarter: 2018Q4

REPORT INFORMATION
  Report Type: Spontaneous
  Country: US (occurrence: US)
  Receive Date: 20181003
  Receipt Date: 20181024
  Transmission Date: 20190204
  Serious: No
  Sender: FDA-Public Use
  Company Number: US-AMGEN-USASP2018136049

PATIENT
  Age: 63 Year
  Sex: Female

DRUGS (4)
  1. KYPROLIS [Suspect]
     Active Substance: CARFILZOMIB
     Dosage: 70 MG/M2, UNK ON DAYS 8 AND 15 OF ALL CYCLES
     Route: 065
  2. KYPROLIS [Suspect]
     Active Substance: CARFILZOMIB
     Indication: PLASMA CELL MYELOMA
     Dosage: 20 MG/M2, UNK (30-MINUTE INFUSION) ON DAYS 1 OF CYCLE 1
     Route: 065
     Dates: start: 201808
  3. DEXAMETHASONE. [Concomitant]
     Active Substance: DEXAMETHASONE
     Indication: PLASMA CELL MYELOMA
     Dosage: 40 MG, ON DAYS 1, 8, AND 15 (ALL CYCLES) PLUS DAY 22 (CYCLE 1-9 ONLY) THROUGH IV OR PO
  4. KYPROLIS [Suspect]
     Active Substance: CARFILZOMIB
     Dosage: UNK (WITH A 25% REDUCTION OF 70 MG/M2)
     Route: 065
     Dates: start: 20180926

REACTIONS (2)
  - Neutrophil count decreased [Not Recovered/Not Resolved]
  - Off label use [Unknown]
